FAERS Safety Report 9365974 (Version 1)
Quarter: 2013Q2

REPORT INFORMATION
  Report Type: Spontaneous
  Country: US (occurrence: US)
  Receive Date: 20130625
  Receipt Date: 20130625
  Transmission Date: 20140414
  Serious: No
  Sender: FDA-Public Use
  Company Number: US-PFIZER INC-2013185163

PATIENT
  Age: 38 Year
  Sex: Female
  Weight: 61.2 kg

DRUGS (9)
  1. PREMPRO [Suspect]
     Indication: BLOOD OESTROGEN DECREASED
     Dosage: 1 DF, 1X/DAY
     Route: 048
     Dates: start: 201210, end: 201305
  2. LEXAPRO [Concomitant]
     Dosage: UNK
  3. ABILIFY [Concomitant]
     Dosage: UNK
  4. AMBIEN [Concomitant]
     Dosage: UNK
  5. TYLENOL [Concomitant]
     Indication: PAIN
     Dosage: 40 MG, AS NEEDED
  6. LIDODERM [Concomitant]
     Indication: HYPOAESTHESIA
     Dosage: UNK
  7. CLONAZEPAM [Concomitant]
     Dosage: UNK
  8. PROPRANOLOL [Concomitant]
     Indication: HYPERTENSION
     Dosage: UNK
  9. HYDROCHLOROTHIAZIDE [Concomitant]
     Indication: HYPERTENSION
     Dosage: UNK

REACTIONS (2)
  - Menstruation irregular [Unknown]
  - Metrorrhagia [Unknown]
